FAERS Safety Report 23642820 (Version 2)
Quarter: 2024Q1

REPORT INFORMATION
  Report Type: Spontaneous
  Country: CN (occurrence: CN)
  Receive Date: 20240318
  Receipt Date: 20240329
  Transmission Date: 20240410
  Serious: Yes (Death, Life-Threatening, Hospitalization, Other)
  Sender: FDA-Public Use
  Company Number: CN-PFIZER INC-PV202400035415

PATIENT
  Age: 15 Month
  Sex: Female
  Weight: 7.4 kg

DRUGS (19)
  1. LINEZOLID [Suspect]
     Active Substance: LINEZOLID
     Indication: Respiratory tract infection
     Dosage: UNK
  2. LINEZOLID [Suspect]
     Active Substance: LINEZOLID
     Indication: Antibiotic therapy
  3. METHYLPREDNISOLONE [Suspect]
     Active Substance: METHYLPREDNISOLONE
     Indication: Respiratory tract infection
     Dosage: UNK
  4. CEFEPIME [Suspect]
     Active Substance: CEFEPIME HYDROCHLORIDE
     Indication: Respiratory tract infection
     Dosage: UNK
  5. CEFEPIME [Suspect]
     Active Substance: CEFEPIME HYDROCHLORIDE
     Indication: Antibiotic therapy
  6. CEFTIZOXIME [Suspect]
     Active Substance: CEFTIZOXIME
     Indication: Respiratory tract infection
     Dosage: UNK
  7. CEFTIZOXIME [Suspect]
     Active Substance: CEFTIZOXIME
     Indication: Antibiotic therapy
  8. FUSIDIC ACID [Suspect]
     Active Substance: FUSIDIC ACID
     Indication: Respiratory tract infection
     Dosage: UNK
  9. FUSIDIC ACID [Suspect]
     Active Substance: FUSIDIC ACID
     Indication: Antibiotic therapy
  10. IMIPENEM [Suspect]
     Active Substance: IMIPENEM
     Indication: Respiratory tract infection
     Dosage: UNK
  11. IMIPENEM [Suspect]
     Active Substance: IMIPENEM
     Indication: Antibiotic therapy
  12. RIFAMYCIN [Suspect]
     Active Substance: RIFAMYCIN
     Indication: Respiratory tract infection
     Dosage: UNK
  13. RIFAMYCIN [Suspect]
     Active Substance: RIFAMYCIN
     Indication: Antibiotic therapy
  14. VIDARABINE [Suspect]
     Active Substance: VIDARABINE
     Indication: Respiratory tract infection
     Dosage: UNK
  15. VIDARABINE [Suspect]
     Active Substance: VIDARABINE
     Indication: Antiviral treatment
  16. PERAMIVIR [Suspect]
     Active Substance: PERAMIVIR
     Indication: Respiratory tract infection
     Dosage: UNK
  17. PERAMIVIR [Suspect]
     Active Substance: PERAMIVIR
     Indication: Antiviral treatment
  18. HUMAN IMMUNOGLOBULIN G [Suspect]
     Active Substance: HUMAN IMMUNOGLOBULIN G
     Indication: Respiratory tract infection
     Dosage: UNK
  19. CEFTRIAXONE [Suspect]
     Active Substance: CEFTRIAXONE\CEFTRIAXONE SODIUM
     Indication: Antibiotic therapy
     Dosage: UNK

REACTIONS (1)
  - Treatment failure [Fatal]
